FAERS Safety Report 10223125 (Version 4)
Quarter: 2014Q3

REPORT INFORMATION
  Report Type: Report from Study
  Country: GT (occurrence: GT)
  Receive Date: 20140607
  Receipt Date: 20140926
  Transmission Date: 20150326
  Serious: Yes (Hospitalization, Disabling)
  Sender: FDA-Public Use
  Company Number: PHHY2014GT069311

PATIENT
  Age: 34 Year
  Sex: Female
  Weight: 125 kg

DRUGS (4)
  1. LYRICA [Concomitant]
     Active Substance: PREGABALIN
     Dosage: 150 MG, Q12H
     Route: 048
  2. VITAMIN D [Concomitant]
     Active Substance: CHOLECALCIFEROL
     Dosage: 1 DF, Q24H
     Route: 048
  3. GILENYA [Suspect]
     Active Substance: FINGOLIMOD HYDROCHLORIDE
     Indication: MULTIPLE SCLEROSIS
     Dosage: 0.5 MG, QD
     Dates: start: 20140428
  4. DOLO NEUROBION                     /00194601/ [Concomitant]
     Dosage: 1 DF, Q24H

REACTIONS (15)
  - Muscle spasms [Not Recovered/Not Resolved]
  - Paraplegia [Recovering/Resolving]
  - Hypoaesthesia [Unknown]
  - Nasopharyngitis [Unknown]
  - Mobility decreased [Unknown]
  - Paraparesis [Unknown]
  - Central nervous system lesion [Unknown]
  - Hypotonia [Not Recovered/Not Resolved]
  - Muscular weakness [Unknown]
  - Headache [Unknown]
  - Bone pain [Unknown]
  - Pyrexia [Unknown]
  - Multiple sclerosis relapse [Unknown]
  - Incontinence [Unknown]
  - Pain [Not Recovered/Not Resolved]

NARRATIVE: CASE EVENT DATE: 201405
